FAERS Safety Report 20821090 (Version 3)
Quarter: 2022Q2

REPORT INFORMATION
  Report Type: Spontaneous
  Country: US (occurrence: US)
  Receive Date: 20220512
  Receipt Date: 20220526
  Transmission Date: 20220721
  Serious: No
  Sender: FDA-Public Use
  Company Number: US-PFIZER INC-202200258080

PATIENT
  Age: 61 Year
  Sex: Female

DRUGS (2)
  1. XELJANZ XR [Suspect]
     Active Substance: TOFACITINIB CITRATE
     Indication: Rheumatoid arthritis
     Dosage: 11 MG, 1X/DAY (TAKE 1 TABLET BY MOUTH ONCE DAILY)
     Route: 048
  2. XELJANZ XR [Suspect]
     Active Substance: TOFACITINIB CITRATE
     Dosage: 11 MG, 1X/DAY (TAKE 1 TABLET BY MOUTH ONCE DAILY)
     Route: 048

REACTIONS (5)
  - Gastroenteritis viral [Unknown]
  - Vomiting [Unknown]
  - Headache [Not Recovered/Not Resolved]
  - Arthralgia [Unknown]
  - Abdominal pain upper [Not Recovered/Not Resolved]
